FAERS Safety Report 24588248 (Version 2)
Quarter: 2025Q2

REPORT INFORMATION
  Report Type: Spontaneous
  Country: US (occurrence: US)
  Receive Date: 20241107
  Receipt Date: 20250409
  Transmission Date: 20250717
  Serious: No
  Sender: JOHNSON AND JOHNSON
  Company Number: US-JNJFOC-20241077326

PATIENT
  Age: 9 Year
  Sex: Male

DRUGS (6)
  1. RISPERDAL [Suspect]
     Active Substance: RISPERIDONE
     Indication: Autism spectrum disorder
     Dosage: 1 MG/ML?0.25 ML BY MOUTH TWICE DAILY
     Route: 048
     Dates: start: 20110501, end: 201107
  2. RISPERDAL [Suspect]
     Active Substance: RISPERIDONE
     Indication: Affective disorder
     Route: 048
  3. RISPERDAL [Suspect]
     Active Substance: RISPERIDONE
     Indication: Agitation
  4. RISPERDAL [Suspect]
     Active Substance: RISPERIDONE
     Indication: Impulsive behaviour
  5. RISPERDAL [Suspect]
     Active Substance: RISPERIDONE
     Indication: Psychomotor hyperactivity
  6. RISPERDAL [Suspect]
     Active Substance: RISPERIDONE
     Indication: Behaviour disorder

REACTIONS (2)
  - Drug ineffective [Unknown]
  - Constipation [Unknown]

NARRATIVE: CASE EVENT DATE: 20110701
